FAERS Safety Report 7050239-4 (Version None)
Quarter: 2010Q4

REPORT INFORMATION
  Report Type: 
  Country: None (occurrence: None)
  Receive Date: 20101018
  Receipt Date: 20101008
  Transmission Date: 20110411
  Serious: Yes (Hospitalization)
  Sender: FDA-Public Use
  Company Number: JP-ABBOTT-10P-087-0673135-00

PATIENT
  Sex: Male
  Weight: 91 kg

DRUGS (6)
  1. HUMIRA [Suspect]
     Indication: PSORIASIS
     Route: 058
     Dates: start: 20100303, end: 20100303
  2. HUMIRA [Suspect]
     Route: 058
     Dates: start: 20100317, end: 20100519
  3. MAXACALCITOL [Concomitant]
     Indication: PSORIASIS
     Route: 061
  4. CLOBETASOL PROPIONATE [Concomitant]
     Indication: PSORIASIS
     Route: 061
  5. METILDIGOXIN [Concomitant]
     Indication: PRODUCT USED FOR UNKNOWN INDICATION
     Route: 048
     Dates: start: 20100301
  6. CANDESARTAN CILEXETIL [Concomitant]
     Indication: HYPERTENSION
     Route: 048
     Dates: start: 20100301

REACTIONS (3)
  - ALCOHOLIC PANCREATITIS [None]
  - ALCOHOLISM [None]
  - CELLULITIS [None]
